FAERS Safety Report 4335900-4 (Version None)
Quarter: 2004Q2

REPORT INFORMATION
  Report Type: 
  Country: None (occurrence: None)
  Receive Date: 20040405
  Receipt Date: 20040324
  Transmission Date: 20050107
  Serious: Yes (Life-Threatening, Hospitalization)
  Sender: FDA-Public Use
  Company Number: 04P-056-0254716-00

PATIENT
  Age: 36 Year
  Sex: Male
  Weight: 52 kg

DRUGS (3)
  1. KALETRA [Suspect]
     Indication: HIV INFECTION
     Dosage: PER ORAL
     Route: 048
     Dates: start: 20010226
  2. DIDANOSINE [Suspect]
     Indication: HIV INFECTION
     Dosage: PER ORAL
     Route: 048
     Dates: start: 20020729
  3. ABACAVIR [Suspect]
     Indication: HIV INFECTION
     Dosage: PER ORAL
     Route: 048
     Dates: start: 20030602

REACTIONS (2)
  - LIPODYSTROPHY ACQUIRED [None]
  - MYOCARDIAL INFARCTION [None]
